FAERS Safety Report 8051512-3 (Version None)
Quarter: 2012Q1

REPORT INFORMATION
  Report Type: 
  Country: None (occurrence: None)
  Receive Date: 20120117
  Receipt Date: 20120111
  Transmission Date: 20120608
  Serious: No
  Sender: FDA-Public Use
  Company Number: US-BAYER-2012-005013

PATIENT

DRUGS (2)
  1. ALEVE (CAPLET) [Suspect]
     Indication: MUSCULOSKELETAL PAIN
  2. ALEVE (CAPLET) [Suspect]
     Indication: PAIN IN EXTREMITY

REACTIONS (2)
  - MUSCULOSKELETAL PAIN [None]
  - PAIN IN EXTREMITY [None]
